FAERS Safety Report 8170500-X (Version None)
Quarter: 2012Q1

REPORT INFORMATION
  Report Type: 
  Country: None (occurrence: None)
  Receive Date: 20120104
  Receipt Date: 20111003
  Transmission Date: 20120608
  Serious: No
  Sender: FDA-Public Use
  Company Number: 2011HGS-002485

PATIENT
  Age: 36 Year
  Sex: Female
  Weight: 107.5025 kg

DRUGS (23)
  1. BENLYSTA [Suspect]
     Indication: SYSTEMIC LUPUS ERYTHEMATOSUS
     Dosage: 10 MG/KG, 1 IN 14 D, INTRAVENOUS DRIP
     Route: 041
     Dates: start: 20110803
  2. LOVENOX(HEPARIN-FRACTION, SODIUM SALT)(HEPARIN-FRACTION, SODIUM [Concomitant]
  3. PRILOSEC(OMEPRAZOLE)(OMEPRAZOLE) [Concomitant]
  4. CALCIUM (CALCIUM) (CALCIUM) [Concomitant]
  5. LORAZEPAM [Concomitant]
  6. METOLAZONE(METOLAZONE) (METOLAZONE) [Concomitant]
  7. CELLCEPT(MYCOPHENOLATE MOFETIL)(MYCOPHENOLATE MOFETIL) [Concomitant]
  8. NORTRIPTYLINE HCL(NORTRIPTYLINE HYDROCHLORIDE)(NORTRIPTYLINE HYDROCHLO [Concomitant]
  9. VICODIN(VICODIN)(PARACETAMOL, HYDROCODONE BITARTRATE) [Concomitant]
  10. TRAMADOL HCL(TRAMADOL HYDROCHLORIDE)(TRAMADOL [Concomitant]
  11. EXCEDRIN MIGRAINE(THOMAPYRIN N)(ACETYLSALICYLIC ACID, CAFFEINE, PARACE [Concomitant]
  12. FOLIC ACID [Concomitant]
  13. LISINOPRIL [Concomitant]
  14. DESONIDE(DESONIDE) (DESONIDE) [Concomitant]
  15. MIRAPEX(PRAMIPEXOLE DIHYDROCHLORIDE)(PRAMIPEXOLE DIHYDROCHLORIDE [Concomitant]
  16. VITAMIN C(ASCORBIC ACID)(ASCORBIC ACID [Concomitant]
  17. ZOFRAN(ONDANSETRON HYDROCHLORIDE)(ONDANSETRON HYDROCHLORIDE) [Concomitant]
  18. CITALOPRAM HYDROBROMIDE [Concomitant]
  19. FUROSEMIDE [Concomitant]
  20. HYDROXYCHLOROQUINE SULFATE [Concomitant]
  21. ASPIR-LOW(ACETYLSALICYLIC ACID)(ACETYLSALICYLIC ACID) [Concomitant]
  22. PREDNISONE [Concomitant]
  23. TYLENOL(PARACETAMOL)(PARACETAMOL) [Concomitant]

REACTIONS (3)
  - PAIN IN EXTREMITY [None]
  - ARTHRALGIA [None]
  - CHEST PAIN [None]
